FAERS Safety Report 21641556 (Version 4)
Quarter: 2022Q4

REPORT INFORMATION
  Report Type: Spontaneous
  Country: US (occurrence: US)
  Receive Date: 20221125
  Receipt Date: 20221217
  Transmission Date: 20230112
  Serious: No
  Sender: FDA-Public Use
  Company Number: US-002147023-NVSC2022US264983

PATIENT
  Sex: Female
  Weight: 66.67 kg

DRUGS (7)
  1. COMBIPATCH [Suspect]
     Active Substance: ESTRADIOL\NORETHINDRONE ACETATE
     Indication: Menopause
     Dosage: 1 PATCH, BIW
     Route: 062
     Dates: start: 2021
  2. COMBIPATCH [Suspect]
     Active Substance: ESTRADIOL\NORETHINDRONE ACETATE
     Indication: Hot flush
     Dosage: UNK
     Route: 062
  3. COMBIPATCH [Suspect]
     Active Substance: ESTRADIOL\NORETHINDRONE ACETATE
     Indication: Rectal haemorrhage
     Dosage: 1 PATCH, BIW
     Route: 062
     Dates: start: 2022
  4. PROZAC [Suspect]
     Active Substance: FLUOXETINE HYDROCHLORIDE
     Indication: Night sweats
     Dosage: 10 MG, QD
     Route: 065
  5. PROZAC [Suspect]
     Active Substance: FLUOXETINE HYDROCHLORIDE
     Dosage: 20 MG, QD (GIVEN WITH COMBIPATCH)
     Route: 065
  6. SYNTHROID [Concomitant]
     Active Substance: LEVOTHYROXINE SODIUM
     Indication: Basedow^s disease
     Dosage: UNK
     Route: 065
  7. ROSUVASTATIN [Concomitant]
     Active Substance: ROSUVASTATIN
     Indication: Blood cholesterol increased
     Dosage: UNK
     Route: 065

REACTIONS (8)
  - Application site erosion [Not Recovered/Not Resolved]
  - Application site scab [Unknown]
  - Application site wound [Unknown]
  - Product adhesion issue [Unknown]
  - Device issue [Not Recovered/Not Resolved]
  - Device adhesion issue [Unknown]
  - Product storage error [Not Recovered/Not Resolved]
  - Off label use [Not Recovered/Not Resolved]

NARRATIVE: CASE EVENT DATE: 20220101
